FAERS Safety Report 10034329 (Version 1)
Quarter: 2014Q1

REPORT INFORMATION
  Report Type: Spontaneous
  Country: US (occurrence: None)
  Receive Date: 20140324
  Receipt Date: 20140324
  Transmission Date: 20141002
  Serious: Yes (Other)
  Sender: FDA-Public Use
  Company Number: None

PATIENT
  Age: 62 Year
  Sex: Female
  Weight: 68.04 kg

DRUGS (1)
  1. NASONEX [Suspect]
     Indication: SINUS CONGESTION
     Dosage: 2 SPRAYS EACH NOSTRIL TWICE DAILY INHALATION
     Route: 055
     Dates: start: 20140317, end: 20140320

REACTIONS (5)
  - Dizziness [None]
  - Abasia [None]
  - Nausea [None]
  - Vertigo [None]
  - Tinnitus [None]
